FAERS Safety Report 19360640 (Version 1)
Quarter: 2021Q2

REPORT INFORMATION
  Report Type: Report from Study
  Country: None (occurrence: US)
  Receive Date: 20210602
  Receipt Date: 20210602
  Transmission Date: 20210717
  Serious: No
  Sender: FDA-Public Use
  Company Number: US-MDD US OPERATIONS-MDD202009-001859

PATIENT
  Age: 71 Year
  Sex: Male
  Weight: 117.93 kg

DRUGS (4)
  1. APOKYN [Suspect]
     Active Substance: APOMORPHINE HYDROCHLORIDE
     Route: 058
     Dates: start: 202009, end: 20200918
  2. CARBIDOPA LEVODOPA [Concomitant]
     Active Substance: CARBIDOPA\LEVODOPA
     Dosage: NOT PROVIDED
     Route: 048
  3. COUMADIN [Concomitant]
     Active Substance: WARFARIN SODIUM
     Dosage: NOT PROVIDED
  4. APOKYN [Suspect]
     Active Substance: APOMORPHINE HYDROCHLORIDE
     Indication: PARKINSON^S DISEASE
     Route: 058
     Dates: start: 20200914

REACTIONS (5)
  - Asthenia [Recovered/Resolved]
  - Therapy non-responder [Unknown]
  - Tremor [Recovered/Resolved]
  - Dysphonia [Recovered/Resolved]
  - Dizziness [Recovered/Resolved]

NARRATIVE: CASE EVENT DATE: 20200914
